FAERS Safety Report 7701076-6 (Version None)
Quarter: 2011Q3

REPORT INFORMATION
  Report Type: 
  Country: None (occurrence: None)
  Receive Date: 20110822
  Receipt Date: 20110809
  Transmission Date: 20111222
  Serious: Yes (Other)
  Sender: FDA-Public Use
  Company Number: AU-GLAXOSMITHKLINE-A0941263A

PATIENT
  Age: 40 Year
  Sex: Female

DRUGS (2)
  1. NICORETTE [Suspect]
     Indication: SMOKING CESSATION THERAPY
     Route: 062
     Dates: start: 20110807
  2. ANTI-EPILEPTIC DRUGS (UNSPECIFIED) [Concomitant]
     Indication: EPILEPSY

REACTIONS (3)
  - EPILEPSY [None]
  - CONDITION AGGRAVATED [None]
  - OVERDOSE [None]
